FAERS Safety Report 5625596-3 (Version None)
Quarter: 2008Q1

REPORT INFORMATION
  Report Type: 
  Country: None (occurrence: None)
  Receive Date: 20080214
  Receipt Date: 20080205
  Transmission Date: 20080703
  Serious: Yes (Death, Life-Threatening, Other)
  Sender: FDA-Public Use
  Company Number: GB-JNJFOC-20080201229

PATIENT
  Sex: Female
  Weight: 55 kg

DRUGS (9)
  1. REMICADE [Suspect]
     Indication: RHEUMATOID ARTHRITIS
     Route: 042
  2. METHOTREXATE [Concomitant]
  3. PREDNISOLONE [Concomitant]
  4. DICLOFENAC [Concomitant]
  5. FOLIC ACID [Concomitant]
  6. FOSAMAX [Concomitant]
  7. PARACETAMOL [Concomitant]
  8. RANITIDINE [Concomitant]
  9. PENICILLAMINE [Concomitant]

REACTIONS (1)
  - DEATH [None]
